FAERS Safety Report 10277405 (Version 2)
Quarter: 2014Q4

REPORT INFORMATION
  Report Type: Spontaneous
  Country: US (occurrence: US)
  Receive Date: 20140703
  Receipt Date: 20141010
  Transmission Date: 20150528
  Serious: Yes (Other)
  Sender: FDA-Public Use
  Company Number: US-BIOGENIDEC-2014BI062817

PATIENT
  Age: 65 Year
  Sex: Female

DRUGS (8)
  1. ESCITALOPRAM OXALATE. [Concomitant]
     Active Substance: ESCITALOPRAM OXALATE
  2. VITAMIN B12 [Concomitant]
     Active Substance: CYANOCOBALAMIN
  3. VITAMIN D [Concomitant]
     Active Substance: CHOLECALCIFEROL
  4. BENADRYL ALLERGY [Concomitant]
     Active Substance: DIPHENHYDRAMINE HYDROCHLORIDE
  5. DONEPEZIL [Concomitant]
     Active Substance: DONEPEZIL
  6. MODAFINIL. [Concomitant]
     Active Substance: MODAFINIL
  7. MELOXICAM. [Concomitant]
     Active Substance: MELOXICAM
  8. TECFIDERA [Suspect]
     Active Substance: DIMETHYL FUMARATE
     Indication: MULTIPLE SCLEROSIS
     Route: 048

REACTIONS (1)
  - Generalised tonic-clonic seizure [Unknown]
